FAERS Safety Report 24995963 (Version 1)
Quarter: 2025Q1

REPORT INFORMATION
  Report Type: Spontaneous
  Country: US (occurrence: US)
  Receive Date: 20250221
  Receipt Date: 20250221
  Transmission Date: 20250409
  Serious: No
  Sender: CATALYST PHARMA
  Company Number: US-CATALYST PHARMACEUTICALS-US-CATA-24-01342

PATIENT
  Sex: Male
  Weight: 36.295 kg

DRUGS (15)
  1. AGAMREE [Suspect]
     Active Substance: VAMOROLONE
     Indication: Duchenne muscular dystrophy
     Dosage: 5.4 ML ONCE A DAY
     Route: 048
     Dates: start: 20240912, end: 20241205
  2. AGAMREE [Suspect]
     Active Substance: VAMOROLONE
     Dosage: 3.8 ML ONCE A DAY
     Route: 048
     Dates: start: 20241205, end: 20241226
  3. AGAMREE [Suspect]
     Active Substance: VAMOROLONE
     Dosage: 1.9 ML DAILY
     Route: 048
     Dates: start: 20241226, end: 202501
  4. ALBUTEROL SULFATE [Concomitant]
     Active Substance: ALBUTEROL SULFATE
     Indication: Product used for unknown indication
     Route: 055
  5. ALBUTEROL SULFATE HFA 108 (90 BASE) [Concomitant]
     Indication: Product used for unknown indication
     Dosage: TWICE A DAY
     Route: 055
  6. EQL COQ10 [Concomitant]
     Indication: Product used for unknown indication
     Dosage: 200 MG DAILY
     Route: 048
  7. MAGNESIUM OXIDE [Concomitant]
     Active Substance: MAGNESIUM OXIDE
     Indication: Product used for unknown indication
     Dosage: 400 MG DAILY
     Route: 048
  8. VITAMINS [Concomitant]
     Active Substance: VITAMINS
     Indication: Product used for unknown indication
     Dosage: ONE TABLET DAILY
     Route: 048
  9. OMEPRAZOLE [Concomitant]
     Active Substance: OMEPRAZOLE
     Indication: Product used for unknown indication
     Dosage: 40 MG DAILY
     Route: 065
  10. CALCIUM [Concomitant]
     Active Substance: CALCIUM
     Indication: Product used for unknown indication
     Dosage: 500 MG DAILY
     Route: 048
  11. QUERCETIN [Concomitant]
     Active Substance: QUERCETIN
     Indication: Product used for unknown indication
     Dosage: 250 MG DAILY
     Route: 048
  12. CHILDRENS TYLENOL [Concomitant]
     Active Substance: ACETAMINOPHEN
     Indication: Product used for unknown indication
     Route: 065
  13. VITAMIN D [Concomitant]
     Active Substance: VITAMIN D NOS
     Indication: Product used for unknown indication
     Dosage: 1000 IU (25 MCG) DAILY
     Route: 048
  14. VOLTAREN [Concomitant]
     Active Substance: DICLOFENAC SODIUM
     Indication: Product used for unknown indication
     Route: 061
  15. GIVINOSTAT [Concomitant]
     Active Substance: GIVINOSTAT
     Indication: Product used for unknown indication
     Dosage: 3.5 ML TWICE A DAY
     Route: 048
     Dates: start: 20241104

REACTIONS (8)
  - Wheelchair user [Unknown]
  - Frustration tolerance decreased [Unknown]
  - Crying [Not Recovered/Not Resolved]
  - Blood cholesterol increased [Unknown]
  - Blood triglycerides increased [Unknown]
  - Sleep disorder [Unknown]
  - Mood altered [Unknown]
  - Weight increased [Unknown]

NARRATIVE: CASE EVENT DATE: 20240101
